FAERS Safety Report 4947899-8 (Version None)
Quarter: 2006Q1

REPORT INFORMATION
  Report Type: 
  Country: None (occurrence: None)
  Receive Date: 20060317
  Receipt Date: 20060317
  Transmission Date: 20060701
  Serious: Yes (Hospitalization)
  Sender: FDA-Public Use
  Company Number: None

PATIENT
  Sex: Female
  Weight: 63.5036 kg

DRUGS (2)
  1. EFFEXOR [Suspect]
     Indication: DEPRESSION
     Dosage: PO
     Route: 048
     Dates: start: 20051205, end: 20051213
  2. BACTRIM [Concomitant]

REACTIONS (8)
  - ERYTHEMA [None]
  - LICHENOID KERATOSIS [None]
  - OCULAR HYPERAEMIA [None]
  - ORAL MUCOSAL DISORDER [None]
  - PRURITUS [None]
  - RASH GENERALISED [None]
  - RASH MACULO-PAPULAR [None]
  - TONGUE ULCERATION [None]
